FAERS Safety Report 8988747 (Version 1)
Quarter: 2012Q4

REPORT INFORMATION
  Report Type: Spontaneous
  Country: US (occurrence: None)
  Receive Date: 20121224
  Receipt Date: 20121224
  Transmission Date: 20130627
  Serious: No
  Sender: FDA-Public Use
  Company Number: None

PATIENT
  Age: 21 Year
  Sex: Female
  Weight: 75.3 kg

DRUGS (1)
  1. INVEGA [Suspect]
     Dosage: 156mg, Every 4 weeks, IM
     Route: 030
     Dates: start: 20120912, end: 20120918

REACTIONS (3)
  - Anxiety [None]
  - Akathisia [None]
  - No therapeutic response [None]
